FAERS Safety Report 13088136 (Version 1)
Quarter: 2017Q1

REPORT INFORMATION
  Report Type: Spontaneous
  Country: US (occurrence: US)
  Receive Date: 20170103
  Receipt Date: 20170103
  Transmission Date: 20170428
  Serious: Yes (Life-Threatening)
  Sender: FDA-Public Use
  Company Number: None

PATIENT
  Age: 45 Year
  Sex: Female
  Weight: 56.25 kg

DRUGS (9)
  1. PEPCID [Concomitant]
     Active Substance: FAMOTIDINE
  2. TRANXENE T-TAB [Concomitant]
     Active Substance: CLORAZEPATE DIPOTASSIUM
  3. FOLINIC ACID [Concomitant]
     Active Substance: LEUCOVORIN
  4. CROMOLYN SODIUM. [Suspect]
     Active Substance: CROMOLYN SODIUM
     Indication: MAST CELL ACTIVATION SYNDROME
     Dosage: 2 AMPULES 4 TIMES A DAY ORAL
     Route: 048
     Dates: start: 20161014, end: 20161229
  5. DESIPRAMINE [Concomitant]
     Active Substance: DESIPRAMINE
  6. VITAMIN C [Concomitant]
     Active Substance: ASCORBIC ACID
  7. ALLEGRA [Concomitant]
     Active Substance: FEXOFENADINE HYDROCHLORIDE
  8. B-VITAMINS [Concomitant]
  9. IRON [Concomitant]
     Active Substance: IRON

REACTIONS (22)
  - Flatulence [None]
  - Rash [None]
  - Dermatitis contact [None]
  - Constipation [None]
  - Back pain [None]
  - Throat tightness [None]
  - Abdominal pain [None]
  - Flushing [None]
  - Cognitive disorder [None]
  - Flank pain [None]
  - Decreased interest [None]
  - Asthenia [None]
  - Lethargy [None]
  - Dyskinesia [None]
  - Pruritus [None]
  - Rash generalised [None]
  - Anaphylactic reaction [None]
  - Oedema [None]
  - Weight increased [None]
  - Vision blurred [None]
  - Sneezing [None]
  - Dizziness [None]

NARRATIVE: CASE EVENT DATE: 20161229
